FAERS Safety Report 14727765 (Version 2)
Quarter: 2018Q2

REPORT INFORMATION
  Report Type: Report from Study
  Country: US (occurrence: US)
  Receive Date: 20180406
  Receipt Date: 20180606
  Transmission Date: 20180711
  Serious: Yes (Hospitalization, Other)
  Sender: FDA-Public Use
  Company Number: US-BAYER-2018-063455

PATIENT
  Sex: Male
  Weight: 89.8 kg

DRUGS (4)
  1. APIXABAN [Concomitant]
     Active Substance: APIXABAN
  2. ADEMPAS [Suspect]
     Active Substance: RIOCIGUAT
     Indication: PULMONARY ARTERIAL HYPERTENSION
     Dosage: 2.5 MG, TID
     Route: 048
  3. ADEMPAS [Suspect]
     Active Substance: RIOCIGUAT
     Indication: PULMONARY ARTERIAL HYPERTENSION
     Dosage: UNK
     Dates: start: 20170808
  4. ADEMPAS [Suspect]
     Active Substance: RIOCIGUAT
     Indication: PULMONARY ARTERIAL HYPERTENSION
     Dosage: 2.5 MG, TID
     Route: 048

REACTIONS (8)
  - Pneumonia [None]
  - Localised infection [None]
  - Thyroid disorder [None]
  - Cardiac failure congestive [Not Recovered/Not Resolved]
  - Erythema [Not Recovered/Not Resolved]
  - Inguinal hernia [None]
  - Urinary tract infection [None]
  - Oedema peripheral [Not Recovered/Not Resolved]
